FAERS Safety Report 15238630 (Version 1)
Quarter: 2018Q3

REPORT INFORMATION
  Report Type: Report from Study
  Country: IL (occurrence: IL)
  Receive Date: 20180803
  Receipt Date: 20180803
  Transmission Date: 20181010
  Serious: Yes (Death, Other)
  Sender: FDA-Public Use
  Company Number: IL-SA-2018SA178996

PATIENT
  Age: 65 Year
  Sex: Female

DRUGS (2)
  1. LIXISENATIDE [Suspect]
     Active Substance: LIXISENATIDE
  2. TOUJEO [Suspect]
     Active Substance: INSULIN GLARGINE
     Dosage: 40 U, QD
     Route: 058

REACTIONS (3)
  - Immobile [Unknown]
  - Aspiration [Fatal]
  - Neuromyopathy [Unknown]
